FAERS Safety Report 9579890 (Version 1)
Quarter: 2013Q3

REPORT INFORMATION
  Report Type: Spontaneous
  Country: US (occurrence: None)
  Receive Date: 20130930
  Receipt Date: 20130930
  Transmission Date: 20140515
  Serious: Yes (Hospitalization, Disabling)
  Sender: FDA-Public Use
  Company Number: None

PATIENT
  Age: 74 Year
  Sex: Female
  Weight: 54.43 kg

DRUGS (16)
  1. TRACLEER [Suspect]
     Indication: PULMONARY HYPERTENSION
     Dosage: 1 PILL
     Route: 048
     Dates: start: 20120220, end: 20120303
  2. CRESTOR [Concomitant]
  3. PULMICORT [Concomitant]
  4. CARDIZEM [Concomitant]
  5. DIAZIDE [Concomitant]
  6. DIGOXIN [Concomitant]
  7. ZESTRIL [Concomitant]
  8. XANAX [Concomitant]
  9. MULTI [Concomitant]
  10. VITAMIN C [Concomitant]
  11. CALCIUM [Concomitant]
  12. B-12 [Concomitant]
  13. VITAMIN D [Concomitant]
  14. COQ10 [Concomitant]
  15. FISH OIL [Concomitant]
  16. MAGNESIUM [Concomitant]

REACTIONS (2)
  - Deep vein thrombosis [None]
  - Respiratory distress [None]
